FAERS Safety Report 8756739 (Version 2)
Quarter: 2012Q4

REPORT INFORMATION
  Report Type: 
  Country: US (occurrence: US)
  Receive Date: 20120828
  Receipt Date: 20121004
  Transmission Date: 20130627
  Serious: Yes (Other)
  Sender: FDA-Public Use
  Company Number: US-JNJFOC-20120811175

PATIENT
  Age: 70 Year
  Sex: Female
  Weight: 86.18 kg

DRUGS (7)
  1. REMICADE [Suspect]
     Indication: RHEUMATOID ARTHRITIS
     Route: 042
     Dates: end: 201205
  2. REMICADE [Suspect]
     Indication: RHEUMATOID ARTHRITIS
     Route: 042
     Dates: start: 200711, end: 201111
  3. NAPROSYN [Concomitant]
     Route: 065
  4. SYNTHROID [Concomitant]
     Route: 065
  5. IMURAN [Concomitant]
     Indication: RHEUMATOID ARTHRITIS
     Route: 065
     Dates: start: 201103, end: 201208
  6. RITUXAN [Concomitant]
     Route: 065
  7. PREDNISONE [Concomitant]
     Indication: RHEUMATOID ARTHRITIS
     Dosage: as needed
     Route: 065
     Dates: start: 200811, end: 201208

REACTIONS (1)
  - Lupus-like syndrome [Recovered/Resolved]
